FAERS Safety Report 5081981-2 (Version None)
Quarter: 2006Q3

REPORT INFORMATION
  Report Type: 
  Country: None (occurrence: None)
  Receive Date: 20060811
  Receipt Date: 20060807
  Transmission Date: 20061208
  Serious: Yes (Hospitalization, Other)
  Sender: FDA-Public Use
  Company Number: FRWYE562307AUG06

PATIENT
  Age: 3 Year
  Sex: Female

DRUGS (4)
  1. ADVIL [Suspect]
     Indication: ABDOMINAL PAIN
     Dosage: ORAL
     Route: 048
     Dates: start: 20060619
  2. ADVIL [Suspect]
     Indication: NASOPHARYNGITIS
     Dosage: ORAL
     Route: 048
     Dates: start: 20060619
  3. ADVIL [Suspect]
     Indication: PYREXIA
     Dosage: ORAL
     Route: 048
     Dates: start: 20060619
  4. ACETAMINOPHEN [Concomitant]

REACTIONS (8)
  - HAEMOGLOBIN DECREASED [None]
  - LOBAR PNEUMONIA [None]
  - LUNG DISORDER [None]
  - PLEURAL DISORDER [None]
  - PNEUMOCOCCAL INFECTION [None]
  - RALES [None]
  - TACHYPNOEA [None]
  - VOMITING [None]
